FAERS Safety Report 18734925 (Version 1)
Quarter: 2021Q1

REPORT INFORMATION
  Report Type: Spontaneous
  Country: US (occurrence: US)
  Receive Date: 20210113
  Receipt Date: 20210113
  Transmission Date: 20210419
  Serious: Yes (Other)
  Sender: FDA-Public Use
  Company Number: US-SA-2021SA003460

PATIENT
  Age: 79 Year
  Sex: Female

DRUGS (1)
  1. AFLIBERCEPT [Suspect]
     Active Substance: AFLIBERCEPT
     Dosage: UNK
     Route: 031

REACTIONS (9)
  - Superficial injury of eye [Recovered/Resolved]
  - Endophthalmitis [Recovered/Resolved]
  - Vitreous opacities [Recovered/Resolved]
  - Uveitis [Recovered/Resolved]
  - Vision blurred [Recovered/Resolved]
  - Hypopyon [Recovered/Resolved]
  - Visual impairment [Recovered/Resolved]
  - Pain [Recovered/Resolved]
  - Visual acuity reduced [Recovered/Resolved]
